FAERS Safety Report 9626386 (Version 1)
Quarter: 2013Q4

REPORT INFORMATION
  Report Type: Spontaneous
  Country: GB (occurrence: None)
  Receive Date: 20131015
  Receipt Date: 20131015
  Transmission Date: 20140711
  Serious: Yes (Hospitalization, Disabling, Other)
  Sender: FDA-Public Use
  Company Number: None

PATIENT
  Age: 62 Year
  Sex: Female
  Weight: 62 kg

DRUGS (1)
  1. CIPROFLOXACIN [Suspect]
     Indication: COUGH
     Route: 048
     Dates: start: 20110411, end: 20110811

REACTIONS (6)
  - Vomiting [None]
  - Diarrhoea [None]
  - Hepatic steatosis [None]
  - Neuropathy peripheral [None]
  - Osteoporosis [None]
  - Fibromyalgia [None]
